FAERS Safety Report 21630625 (Version 3)
Quarter: 2022Q4

REPORT INFORMATION
  Report Type: Spontaneous
  Country: IL (occurrence: IL)
  Receive Date: 20221123
  Receipt Date: 20221210
  Transmission Date: 20230112
  Serious: Yes (Other)
  Sender: FDA-Public Use
  Company Number: IL-002147023-NVSC2022IL253792

PATIENT
  Sex: Female

DRUGS (2)
  1. BEOVU [Suspect]
     Active Substance: BROLUCIZUMAB-DBLL
     Indication: Age-related macular degeneration
     Dosage: UNK (3 MONTH AGO)
     Route: 031
     Dates: start: 20220824
  2. BEOVU [Suspect]
     Active Substance: BROLUCIZUMAB-DBLL
     Dosage: UNK
     Route: 031
     Dates: start: 20221107, end: 20221107

REACTIONS (14)
  - Retinal vasculitis [Not Recovered/Not Resolved]
  - Eye pain [Unknown]
  - Vision blurred [Recovering/Resolving]
  - Subretinal fluid [Unknown]
  - Detachment of retinal pigment epithelium [Unknown]
  - Retinal exudates [Unknown]
  - Chorioretinitis [Unknown]
  - Iridocyclitis [Unknown]
  - Ocular discomfort [Unknown]
  - Visual acuity reduced [Recovering/Resolving]
  - Anterior chamber cell [Unknown]
  - Retinal depigmentation [Unknown]
  - Retinal scar [Unknown]
  - Corneal oedema [Unknown]

NARRATIVE: CASE EVENT DATE: 20221108
